FAERS Safety Report 4497720-X (Version None)
Quarter: 2004Q4

REPORT INFORMATION
  Report Type: 
  Country: None (occurrence: None)
  Receive Date: 20041104
  Receipt Date: 20041020
  Transmission Date: 20050328
  Serious: Yes (Hospitalization)
  Sender: FDA-Public Use
  Company Number: MEDI-0002298

PATIENT
  Age: 11 Month
  Sex: Female
  Weight: 3 kg

DRUGS (6)
  1. SYNAGIS [Suspect]
     Indication: ANTIVIRAL PROPHYLAXIS
     Dosage: SEE IMAGE
     Route: 030
     Dates: start: 20040914, end: 20040914
  2. SYNAGIS [Suspect]
     Indication: ANTIVIRAL PROPHYLAXIS
     Dosage: SEE IMAGE
     Route: 030
     Dates: start: 20041004, end: 20041004
  3. FERRIC PYROPHOSPHATE              (FERIC PYROPHOSPHATE) [Concomitant]
  4. KANAMYCIN [Concomitant]
  5. DEXAPANTHENOL     (DEXPANTHENOL) [Concomitant]
  6. METOCLOPRAMIDE [Concomitant]

REACTIONS (9)
  - ALANINE AMINOTRANSFERASE INCREASED [None]
  - ASPARTATE AMINOTRANSFERASE INCREASED [None]
  - BLOOD CREATINE PHOSPHOKINASE INCREASED [None]
  - BLOOD LACTATE DEHYDROGENASE INCREASED [None]
  - INJECTION SITE PAIN [None]
  - INJECTION SITE SWELLING [None]
  - PYREXIA [None]
  - STRESS SYMPTOMS [None]
  - WHITE BLOOD CELL COUNT INCREASED [None]
